FAERS Safety Report 18564766 (Version 2)
Quarter: 2020Q4

REPORT INFORMATION
  Report Type: Spontaneous
  Country: GB (occurrence: GB)
  Receive Date: 20201201
  Receipt Date: 20201224
  Transmission Date: 20210114
  Serious: Yes (Hospitalization, Other)
  Sender: FDA-Public Use
  Company Number: GB-009507513-2011GBR016883

PATIENT
  Age: 80 Year
  Sex: Female

DRUGS (12)
  1. SINEMET PLUS [Suspect]
     Active Substance: CARBIDOPA\LEVODOPA
     Dosage: UNKNOWN
  2. SINEMET PLUS [Suspect]
     Active Substance: CARBIDOPA\LEVODOPA
     Indication: PARKINSON^S DISEASE
     Dosage: DOSE INCREASED OVER TIME, UNKNOWN
     Dates: start: 201810
  3. ONGENTYS [Suspect]
     Active Substance: OPICAPONE
     Indication: PARKINSON^S DISEASE
     Dosage: 50 MILLIGRAM, Q24H (50 MILLIGRAM, 1X / DAY)
     Dates: start: 20200514, end: 20200710
  4. LEVODOPA [Concomitant]
     Active Substance: LEVODOPA
     Indication: PARKINSON^S DISEASE
     Dosage: 100 MILLIGRAM, UNKNOWN
     Dates: start: 202002
  5. ROTIGOTINE [Concomitant]
     Active Substance: ROTIGOTINE
     Dosage: 10 MILLIGRAM, Q24H, REDUCED TO 10 MILLIGRAM,PATCH
     Route: 065
     Dates: start: 20200702, end: 202008
  6. ROTIGOTINE [Concomitant]
     Active Substance: ROTIGOTINE
     Dosage: 8 MILLIGRAM, Q24H,REDUCED TO 8 MILLIGRAM,PATCH
     Route: 065
     Dates: start: 202008, end: 20200909
  7. FLUDROCORTISONE [Concomitant]
     Active Substance: FLUDROCORTISONE
     Indication: ORTHOSTATIC HYPOTENSION
     Dosage: UNK
  8. CARBIDOPA (+) LEVODOPA [Concomitant]
     Active Substance: CARBIDOPA\LEVODOPA
     Dosage: 125 MILLIGRAM,5 TIMES DAILY
     Route: 048
     Dates: start: 2014
  9. ROTIGOTINE [Concomitant]
     Active Substance: ROTIGOTINE
     Indication: PARKINSON^S DISEASE
     Dosage: 16 MILLIGRAM, Q24H,PATCH
     Route: 062
     Dates: start: 20141010, end: 20200702
  10. LEVODOPA [Concomitant]
     Active Substance: LEVODOPA
     Dosage: UNK,DOSE ADJUSTED (NOS)
  11. CARBIDOPA (+) LEVODOPA [Concomitant]
     Active Substance: CARBIDOPA\LEVODOPA
     Dosage: 62.5 MILLIGRAM,5 TIMES DAILY
     Route: 048
     Dates: start: 2014
  12. ROPINIROLE. [Concomitant]
     Active Substance: ROPINIROLE
     Indication: PARKINSON^S DISEASE
     Dosage: 16 MILLIGRAM, UNKNOWN
     Dates: start: 202002

REACTIONS (6)
  - Persecutory delusion [Unknown]
  - Aggression [Recovered/Resolved]
  - Therapy cessation [Unknown]
  - Agitation [Recovered/Resolved]
  - Hallucination, visual [Recovered/Resolved]
  - Paranoia [Recovered/Resolved]

NARRATIVE: CASE EVENT DATE: 20200622
